FAERS Safety Report 17516626 (Version 1)
Quarter: 2020Q1

REPORT INFORMATION
  Report Type: Spontaneous
  Country: GB (occurrence: GB)
  Receive Date: 20200309
  Receipt Date: 20200309
  Transmission Date: 20200409
  Serious: Yes (Hospitalization)
  Sender: FDA-Public Use
  Company Number: GB-MYLANLABS-2020M1023534

PATIENT
  Age: 70 Year
  Sex: Female

DRUGS (8)
  1. MIRTAZAPINE. [Suspect]
     Active Substance: MIRTAZAPINE
     Indication: DEPRESSION
     Dosage: 45 MILLIGRAM, QD (AT NIGHT)
     Route: 048
     Dates: start: 2018
  2. DULOXETINE. [Suspect]
     Active Substance: DULOXETINE
     Dosage: 60 MILLIGRAM, QD (60MG OD 30/9/19 TILL 6/10/19 THEN 90MG OD TILL 25/10/19 THIS REDUCED TO 60MG OD)
     Route: 048
     Dates: start: 20190930, end: 20191006
  3. DULOXETINE. [Suspect]
     Active Substance: DULOXETINE
     Dosage: 60 MILLIGRAM, QD
     Route: 048
     Dates: start: 20191026
  4. DULOXETINE. [Suspect]
     Active Substance: DULOXETINE
     Indication: DEPRESSION
     Dosage: 90 MILLIGRAM, QD (60MG OD 30/9/19 TILL 6/10/19 THEN 90MG OD TILL 25/10/19 THIS REDUCED TO 60MG OD)
     Route: 048
     Dates: start: 20191007, end: 20191025
  5. TRIMETHOPRIM. [Concomitant]
     Active Substance: TRIMETHOPRIM
     Indication: URINARY TRACT INFECTION
     Dosage: UNK
  6. ATORVASTATIN [Concomitant]
     Active Substance: ATORVASTATIN
     Dosage: 20 MILLIGRAM, QD (AT NIGHT)
     Route: 048
  7. ARIPIPRAZOLE. [Concomitant]
     Active Substance: ARIPIPRAZOLE
     Indication: DEPRESSION
     Dosage: 10 MILLIGRAM, QD
     Route: 048
     Dates: start: 20191010
  8. LORAZEPAM. [Concomitant]
     Active Substance: LORAZEPAM
     Dosage: FOUR HOURLY, MAXIMUM 1MG
     Route: 048

REACTIONS (10)
  - Cold sweat [Unknown]
  - Musculoskeletal stiffness [Unknown]
  - Tachycardia [Unknown]
  - Anxiety [Unknown]
  - Confusional state [Unknown]
  - Hyperhidrosis [Unknown]
  - Urinary retention [Recovering/Resolving]
  - Disorientation [Unknown]
  - Serotonin syndrome [Unknown]
  - Persecutory delusion [Unknown]

NARRATIVE: CASE EVENT DATE: 20191028
